FAERS Safety Report 4573605-5 (Version None)
Quarter: 2005Q1

REPORT INFORMATION
  Report Type: 
  Country: None (occurrence: None)
  Receive Date: 20050208
  Receipt Date: 20040924
  Transmission Date: 20050727
  Serious: No
  Sender: FDA-Public Use
  Company Number: US-GLAXOSMITHKLINE-A0527294A

PATIENT
  Sex: Female

DRUGS (7)
  1. PAXIL [Suspect]
     Indication: ILL-DEFINED DISORDER
     Dosage: 20MG PER DAY
     Route: 048
     Dates: start: 20040801, end: 20040901
  2. TOPAMAX [Concomitant]
  3. TRAZODONE [Concomitant]
  4. BENTYL [Concomitant]
  5. MINOCYCLINE HCL [Concomitant]
  6. LEVOXYL [Concomitant]
  7. TRILEPTAL [Concomitant]

REACTIONS (1)
  - DRUG INEFFECTIVE [None]
